FAERS Safety Report 7336455-2 (Version None)
Quarter: 2011Q1

REPORT INFORMATION
  Report Type: 
  Country: None (occurrence: None)
  Receive Date: 20110307
  Receipt Date: 20110222
  Transmission Date: 20110831
  Serious: Yes (Other)
  Sender: FDA-Public Use
  Company Number: GB-MYLANLABS-2011S1003641

PATIENT
  Sex: Male

DRUGS (11)
  1. PETHIDINE [Concomitant]
     Indication: PAIN
  2. PARACETAMOL [Concomitant]
     Indication: PAIN
  3. ASPIRIN [Concomitant]
     Indication: PRODUCT USED FOR UNKNOWN INDICATION
  4. IBUPROFEN [Concomitant]
     Indication: PAIN
  5. BISOPROLOL FUMARATE [Suspect]
     Indication: CARDIAC DISORDER
  6. RAMIPRIL [Suspect]
     Indication: CARDIAC DISORDER
  7. ROSUVASTATIN [Concomitant]
     Indication: PRODUCT USED FOR UNKNOWN INDICATION
  8. TRAMADOL HCL [Concomitant]
     Indication: PAIN
  9. YARROW TCT [Concomitant]
     Indication: PRODUCT USED FOR UNKNOWN INDICATION
  10. COVERSYL ARGININE [Concomitant]
     Indication: CARDIAC DISORDER
  11. PEPPERMINT OIL [Concomitant]
     Indication: PRODUCT USED FOR UNKNOWN INDICATION
     Dosage: 3-4 DROPS

REACTIONS (2)
  - OSTEOARTHRITIS [None]
  - PSORIASIS [None]
